FAERS Safety Report 20745631 (Version 1)
Quarter: 2022Q2

REPORT INFORMATION
  Report Type: Spontaneous
  Country: US (occurrence: US)
  Receive Date: 20220425
  Receipt Date: 20220425
  Transmission Date: 20220721
  Serious: No
  Sender: FDA-Public Use
  Company Number: US-HISAMITSU PHARMACEUTICAL CO., INC.-2022-NOV-US000052

PATIENT

DRUGS (1)
  1. SECUADO [Suspect]
     Active Substance: ASENAPINE
     Indication: Product used for unknown indication
     Dosage: UNKNOWN
     Route: 062

REACTIONS (3)
  - Rash [Unknown]
  - Product administered at inappropriate site [Unknown]
  - Product adhesion issue [Unknown]
